FAERS Safety Report 4358857-9 (Version None)
Quarter: 2004Q2

REPORT INFORMATION
  Report Type: 
  Country: None (occurrence: None)
  Receive Date: 20040511
  Receipt Date: 20040403
  Transmission Date: 20050107
  Serious: Yes (Hospitalization, Other)
  Sender: FDA-Public Use
  Company Number: KII-2004-0010043

PATIENT
  Age: 28 Year
  Sex: Male

DRUGS (4)
  1. MS CONTIN [Suspect]
     Indication: DRUG USE FOR UNKNOWN INDICATION
  2. DIPHENHYDRAMINE HCL [Suspect]
     Indication: DRUG USE FOR UNKNOWN INDICATION
  3. COCAINE (COCAINE) [Suspect]
     Indication: DRUG USE FOR UNKNOWN INDICATION
  4. WARFARIN SODIUM [Concomitant]

REACTIONS (16)
  - ASPIRATION [None]
  - BLOOD PRESSURE DIASTOLIC DECREASED [None]
  - BOWEL SOUNDS ABNORMAL [None]
  - BRADYPNOEA [None]
  - COMA [None]
  - DEHYDRATION [None]
  - HEART RATE INCREASED [None]
  - HEPATITIS [None]
  - INTERNATIONAL NORMALISED RATIO INCREASED [None]
  - LUNG INFILTRATION [None]
  - MIOSIS [None]
  - MOANING [None]
  - MULTIPLE DRUG OVERDOSE [None]
  - RESPIRATORY DEPRESSION [None]
  - RHABDOMYOLYSIS [None]
  - SOMNOLENCE [None]
